FAERS Safety Report 13512750 (Version 2)
Quarter: 2017Q2

REPORT INFORMATION
  Report Type: Spontaneous
  Country: US (occurrence: US)
  Receive Date: 20170504
  Receipt Date: 20170609
  Transmission Date: 20170830
  Serious: No
  Sender: FDA-Public Use
  Company Number: US-PFIZER INC-2017190655

PATIENT
  Age: 58 Year
  Sex: Male

DRUGS (1)
  1. L-ARGININE [Suspect]
     Active Substance: ARGININE
     Dosage: UNK

REACTIONS (3)
  - Therapeutic response unexpected [Recovered/Resolved]
  - Blood pressure decreased [Recovered/Resolved]
  - Pre-existing condition improved [Recovered/Resolved]
